FAERS Safety Report 9970475 (Version 1)
Quarter: 2014Q1

REPORT INFORMATION
  Report Type: Spontaneous
  Country: US (occurrence: None)
  Receive Date: 20140212
  Receipt Date: 20140212
  Transmission Date: 20141002
  Serious: Yes (Other)
  Sender: FDA-Public Use
  Company Number: 2013PP000002

PATIENT
  Age: 7 Year
  Sex: Female

DRUGS (1)
  1. NATROBA [Suspect]
     Indication: LICE INFESTATION
     Route: 061
     Dates: start: 20131204

REACTIONS (1)
  - Rash pruritic [None]
